FAERS Safety Report 6661483-X (Version None)
Quarter: 2010Q1

REPORT INFORMATION
  Report Type: 
  Country: None (occurrence: None)
  Receive Date: 20100331
  Receipt Date: 20100319
  Transmission Date: 20100710
  Serious: Yes (Other)
  Sender: FDA-Public Use
  Company Number: US-PFIZER INC-2010036564

PATIENT
  Sex: Female

DRUGS (4)
  1. NEURONTIN [Suspect]
     Dosage: 800 MG DAILY
  2. NEURONTIN [Suspect]
     Dosage: 450 MG DAILY
  3. NEURONTIN [Suspect]
     Dosage: 700 MG DAILY
  4. KLONOPIN [Concomitant]
     Dosage: UNK

REACTIONS (6)
  - ANXIETY [None]
  - DIZZINESS [None]
  - HYPOAESTHESIA [None]
  - MUSCLE SPASMS [None]
  - PARAESTHESIA [None]
  - VISION BLURRED [None]
